FAERS Safety Report 4463530-2 (Version None)
Quarter: 2004Q3

REPORT INFORMATION
  Report Type: 
  Country: None (occurrence: None)
  Receive Date: 20040928
  Receipt Date: 20040920
  Transmission Date: 20050211
  Serious: Yes (Death, Life-Threatening)
  Sender: FDA-Public Use
  Company Number: 2004CG01861

PATIENT
  Age: 72 Year
  Sex: Male
  Weight: 83 kg

DRUGS (10)
  1. DIPRIVAN [Suspect]
     Indication: GENERAL ANAESTHESIA
     Dates: start: 20040720, end: 20040720
  2. RAPIFEN [Suspect]
     Indication: GENERAL ANAESTHESIA
     Dates: start: 20040720, end: 20040720
  3. SEVORANE [Suspect]
     Indication: GENERAL ANAESTHESIA
     Dates: start: 20040720, end: 20040720
  4. FRAXODI [Suspect]
     Indication: THROMBOSIS PROPHYLAXIS
     Dates: start: 20040720, end: 20040725
  5. NO MATCH [Suspect]
     Dosage: 550 MG BID PO
     Route: 048
     Dates: start: 20040811, end: 20040812
  6. DOGMATIL [Concomitant]
  7. TEMESTA [Concomitant]
  8. KARDEGIC/FRA/ [Concomitant]
  9. COVERSYL/FRA/ [Concomitant]
  10. ACEBUTOLOL [Concomitant]

REACTIONS (11)
  - ANTINUCLEAR ANTIBODY POSITIVE [None]
  - BILE DUCT CANCER [None]
  - COAGULATION FACTOR V LEVEL DECREASED [None]
  - CYTOLYTIC HEPATITIS [None]
  - GALLBLADDER DISORDER [None]
  - HEPATIC ENCEPHALOPATHY [None]
  - HEPATIC STEATOSIS [None]
  - HEPATITIS FULMINANT [None]
  - PLATELET COUNT DECREASED [None]
  - PRURITUS [None]
  - SPLENOMEGALY [None]
